FAERS Safety Report 5774334-2 (Version None)
Quarter: 2008Q2

REPORT INFORMATION
  Report Type: 
  Country: None (occurrence: None)
  Receive Date: 20080616
  Receipt Date: 20080605
  Transmission Date: 20081010
  Serious: Yes (Hospitalization, Other)
  Sender: FDA-Public Use
  Company Number: PHHY2008JP02738

PATIENT
  Age: 5 Year
  Sex: Male

DRUGS (6)
  1. NEORAL [Suspect]
     Indication: NEPHROTIC SYNDROME
     Dosage: UNK
     Route: 048
     Dates: start: 20060801, end: 20060912
  2. STEROIDS NOS [Suspect]
     Indication: NEPHROTIC SYNDROME
  3. MIZORIBINE [Concomitant]
     Indication: NEPHROTIC SYNDROME
  4. CYCLOPHOSPHAMIDE [Concomitant]
     Indication: NEPHROTIC SYNDROME
  5. MYCOPHENOLATE MOFETIL [Concomitant]
     Indication: NEPHROTIC SYNDROME
     Dosage: 1000 MG/M2/DAY
  6. ADRENAL HORMONE PREPARATION [Concomitant]
     Indication: NEPHROTIC SYNDROME

REACTIONS (4)
  - CONVULSION [None]
  - FEBRILE CONVULSION [None]
  - NEPHROTIC SYNDROME [None]
  - TOXIC ENCEPHALOPATHY [None]
